FAERS Safety Report 21237576 (Version 1)
Quarter: 2022Q3

REPORT INFORMATION
  Report Type: Other
  Country: US (occurrence: None)
  Receive Date: 20220822
  Receipt Date: 20220822
  Transmission Date: 20221026
  Serious: Yes (Hospitalization)
  Sender: FDA-Public Use
  Company Number: US-ROCHE-3027573

PATIENT
  Sex: Male

DRUGS (31)
  1. PULMOZYME [Suspect]
     Active Substance: DORNASE ALFA
     Indication: Bronchiectasis
     Dosage: DAILY, 2.5 MG/2.5 ML, NEBULIZER SOLUTION
     Route: 065
  2. PULMOZYME [Suspect]
     Active Substance: DORNASE ALFA
     Indication: Asthma
     Dosage: NEBULIZE THE CONTENTS OF 1 VIAL(S) DAILY
     Route: 065
  3. PULMOZYME [Suspect]
     Active Substance: DORNASE ALFA
     Indication: Respiratory disorder
  4. PULMOZYME [Suspect]
     Active Substance: DORNASE ALFA
     Indication: Pneumothorax
  5. PROVENTIL HFA [Concomitant]
     Active Substance: ALBUTEROL SULFATE
     Dosage: INHALE 2 PUFFS EVERY 4 HOURS AS NEEDED FOR WHEEZING
  6. ASPIRIN [Concomitant]
     Active Substance: ASPIRIN
     Dosage: DAILY
  7. ASTELIN [Concomitant]
     Active Substance: AZELASTINE HYDROCHLORIDE
     Dosage: 1-2 NASAL SPRAY INTO EACH NOSTRILS 2 TIMES A DAY
  8. ZITHROMAX [Concomitant]
     Active Substance: AZITHROMYCIN DIHYDRATE
     Dosage: EVERY MONDAY, WEDNESDAY AND FRIDAY
     Route: 048
  9. CALCIPOTRIENE [Concomitant]
     Active Substance: CALCIPOTRIENE
  10. CICLOPIROX [Concomitant]
     Active Substance: CICLOPIROX
     Dosage: 2 TIMES DAILY
     Route: 061
  11. KLONOPIN [Concomitant]
     Active Substance: CLONAZEPAM
     Dosage: AS NEEDED
     Route: 048
  12. LEXAPRO [Concomitant]
     Active Substance: ESCITALOPRAM OXALATE
     Route: 048
  13. TRELEGY ELLIPTA [Concomitant]
     Active Substance: FLUTICASONE FUROATE\UMECLIDINIUM BROMIDE\VILANTEROL TRIFENATATE
  14. GABAPENTIN [Concomitant]
     Active Substance: GABAPENTIN
     Route: 048
  15. GABAPENTIN [Concomitant]
     Active Substance: GABAPENTIN
     Route: 048
  16. XOPENEX [Concomitant]
     Active Substance: LEVALBUTEROL HYDROCHLORIDE
  17. XYZAL [Concomitant]
     Active Substance: LEVOCETIRIZINE DIHYDROCHLORIDE
     Route: 048
  18. MECHLORETHAMINE HYDROCHLORIDE [Concomitant]
     Active Substance: MECHLORETHAMINE HYDROCHLORIDE
  19. MICONAZOLE;ZINC OXIDE [Concomitant]
  20. SINGULAIR [Concomitant]
     Active Substance: MONTELUKAST SODIUM
     Dosage: NIGHT
     Route: 048
  21. BACTROBAN [Concomitant]
     Active Substance: MUPIROCIN\MUPIROCIN CALCIUM
     Route: 061
  22. MYCOSTATIN [Concomitant]
     Active Substance: NYSTATIN
     Route: 048
  23. MYCOLOG [Concomitant]
     Active Substance: GRAMICIDIN\NEOMYCIN SULFATE\NYSTATIN\TRIAMCINOLONE ACETONIDE
     Route: 061
  24. PRILOSEC [Concomitant]
     Active Substance: OMEPRAZOLE MAGNESIUM
  25. SALAGEN [Concomitant]
     Active Substance: PILOCARPINE HYDROCHLORIDE
  26. FLOMAX [Concomitant]
     Active Substance: TAMSULOSIN HYDROCHLORIDE
  27. ANDRODERM [Concomitant]
     Active Substance: TESTOSTERONE
  28. ULTRACET [Concomitant]
     Active Substance: ACETAMINOPHEN\TRAMADOL HYDROCHLORIDE
  29. TRELEGY ELLIPTA [Concomitant]
     Active Substance: FLUTICASONE FUROATE\UMECLIDINIUM BROMIDE\VILANTEROL TRIFENATATE
  30. KENALOG [Concomitant]
     Active Substance: TRIAMCINOLONE ACETONIDE
  31. NASACORT [Concomitant]
     Active Substance: TRIAMCINOLONE ACETONIDE

REACTIONS (2)
  - Off label use [Unknown]
  - Lung disorder [Unknown]
